FAERS Safety Report 25846583 (Version 1)
Quarter: 2025Q3

REPORT INFORMATION
  Report Type: Spontaneous
  Country: EU (occurrence: EU)
  Receive Date: 20250925
  Receipt Date: 20250925
  Transmission Date: 20251021
  Serious: Yes (Other)
  Sender: AMGEN
  Company Number: EU-AMGEN-ITASP2025186911

PATIENT

DRUGS (2)
  1. XGEVA [Suspect]
     Active Substance: DENOSUMAB
     Indication: Breast cancer metastatic
     Dosage: UNK, QMO (AT LEAST 24 CONSECUTIVE ADMINISTRATIONS)
     Route: 065
  2. XGEVA [Suspect]
     Active Substance: DENOSUMAB
     Indication: Prophylaxis

REACTIONS (4)
  - Pathological fracture [Unknown]
  - Bone disorder [Unknown]
  - Hypercalcaemia [Unknown]
  - Hypocalcaemia [Unknown]
